FAERS Safety Report 4899566-7 (Version None)
Quarter: 2006Q1

REPORT INFORMATION
  Report Type: 
  Country: None (occurrence: None)
  Receive Date: 20060123
  Receipt Date: 20050104
  Transmission Date: 20060701
  Serious: Yes (Other)
  Sender: FDA-Public Use
  Company Number: PERC20050005

PATIENT
  Age: 29 Year
  Sex: Female

DRUGS (4)
  1. PERCOCET [Suspect]
     Indication: PAIN
     Dosage: PO
     Route: 048
     Dates: start: 20041206
  2. BENADRYL [Suspect]
     Indication: PRURITUS
     Dosage: 3-6TSP PO
     Route: 048
     Dates: start: 20041206
  3. KLONOPIN [Concomitant]
  4. GABITRIL [Concomitant]

REACTIONS (6)
  - CONVULSION [None]
  - FATIGUE [None]
  - HYPOVENTILATION [None]
  - NERVOUSNESS [None]
  - POSTICTAL STATE [None]
  - PRURITUS [None]
